FAERS Safety Report 5896313-7 (Version None)
Quarter: 2008Q3

REPORT INFORMATION
  Report Type: 
  Country: None (occurrence: None)
  Receive Date: 20080924
  Receipt Date: 20071017
  Transmission Date: 20090109
  Serious: Yes (Hospitalization, Other)
  Sender: FDA-Public Use
  Company Number: US-ASTRAZENECA-2007UW19632

PATIENT
  Age: 15 Year
  Sex: Female
  Weight: 47.6 kg

DRUGS (2)
  1. SEROQUEL [Suspect]
     Indication: PSYCHOTIC DISORDER
     Route: 048
     Dates: start: 20070815
  2. SEROQUEL [Suspect]
     Indication: SLEEP DISORDER
     Route: 048
     Dates: start: 20070815

REACTIONS (4)
  - CATATONIA [None]
  - DRUG SCREEN POSITIVE [None]
  - MUSCLE RIGIDITY [None]
  - TREMOR [None]
